FAERS Safety Report 24292717 (Version 1)
Quarter: 2024Q3

REPORT INFORMATION
  Report Type: Spontaneous
  Country: US (occurrence: None)
  Receive Date: 20240906
  Receipt Date: 20240906
  Transmission Date: 20241017
  Serious: No
  Sender: DOMPE FARMACEUTICI
  Company Number: US-FARMAPROD-202308-202310-3024

PATIENT
  Sex: Male

DRUGS (4)
  1. OXERVATE [Suspect]
     Active Substance: CENEGERMIN-BKBJ
     Indication: Neurotrophic keratopathy
     Route: 047
     Dates: start: 20230906
  2. CLEAR EYES COMPLETE [Concomitant]
     Active Substance: HYPROMELLOSE 2906 (4000 MPA.S)\NAPHAZOLINE HYDROCHLORIDE\POLYSORBATE 80\ZINC SULFATE HEPTAHYDRATE
  3. PREDNISOLONE-NEPAFENAC [Concomitant]
  4. SYSTANE (HYPROMELLOSE 2910 (4000 MPA.S)) [Concomitant]
     Active Substance: HYPROMELLOSE 2910 (4000 MPA.S)
     Dosage: 0.3 %-0.4%

REACTIONS (1)
  - Eye pain [Unknown]
